FAERS Safety Report 20601609 (Version 1)
Quarter: 2022Q1

REPORT INFORMATION
  Report Type: Spontaneous
  Country: BE (occurrence: BE)
  Receive Date: 20220316
  Receipt Date: 20220316
  Transmission Date: 20220423
  Serious: Yes (Hospitalization, Other)
  Sender: FDA-Public Use
  Company Number: BE-Accord-238121

PATIENT
  Age: 63 Year
  Sex: Male
  Weight: 79 kg

DRUGS (43)
  1. CARBOPLATIN [Suspect]
     Active Substance: CARBOPLATIN
     Dosage: ADDITIONAL INFO: REGIMEN 1
     Route: 042
  2. EPCORITAMAB [Suspect]
     Active Substance: EPCORITAMAB
     Dosage: PRIMING DOSE: 0.16 MG SINGLE, ADDITIONAL INFO : DUOBODY-CD3XCD20, REGIMEN1
     Route: 058
     Dates: start: 20210804, end: 20210804
  3. EPCORITAMAB [Suspect]
     Active Substance: EPCORITAMAB
     Dosage: INTERMEDIATE DOSE: 0.8 MG SINGLE
     Route: 058
     Dates: start: 20210811, end: 20210811
  4. EPCORITAMAB [Suspect]
     Active Substance: EPCORITAMAB
     Dosage: FULL DOSE: 48 MG WEEKLY
     Route: 058
     Dates: start: 20210819, end: 20210819
  5. CYTARABINE [Suspect]
     Active Substance: CYTARABINE
     Dosage: Q12H, UNIT DOSE: 2000MG/M2M ADDITIONAL INFO: REGIMEN 1
     Route: 042
     Dates: start: 20210804, end: 20210805
  6. DEXAMETHASONE [Suspect]
     Active Substance: DEXAMETHASONE
     Dosage: 40 MILLIGRAM DAILY; QD,  ADDITIONAL INFO: REGIMEN 1
     Route: 042
     Dates: start: 20210804, end: 20210807
  7. RITUXIMAB [Suspect]
     Active Substance: RITUXIMAB
     Dosage: SINGLE, UNIT DOSE: 375MG/M2, ADDITIONAL INFO: REGIMEN 1
     Route: 042
     Dates: start: 20210804, end: 20210804
  8. MOXONIDINE [Concomitant]
     Active Substance: MOXONIDINE
     Dates: start: 20210719, end: 20210827
  9. TRAMADOL HYDROCHLORIDE [Concomitant]
     Active Substance: TRAMADOL HYDROCHLORIDE
     Dates: start: 20210718
  10. LIPEGFILGRASTIM [Concomitant]
     Active Substance: LIPEGFILGRASTIM
     Dates: start: 20210805, end: 20210805
  11. BUMETANIDE [Concomitant]
     Active Substance: BUMETANIDE
     Dates: start: 20210806, end: 20210808
  12. MOVICOL [Concomitant]
     Active Substance: POLYETHYLENE GLYCOL 3350\POTASSIUM CHLORIDE\SODIUM BICARBONATE\SODIUM CHLORIDE
     Dates: start: 20210810
  13. HYALURONATE SODIUM\TREHALOSE [Concomitant]
     Active Substance: HYALURONATE SODIUM\TREHALOSE
     Dates: start: 20210804
  14. CLEMASTINE FUMARATE [Concomitant]
     Active Substance: CLEMASTINE FUMARATE
     Dosage: UNIT DOSE: 2 MG
     Dates: start: 20210811, end: 20210811
  15. OMEPRAZOLE [Concomitant]
     Active Substance: OMEPRAZOLE
     Dates: start: 20210719
  16. DAFALGAN [Concomitant]
     Active Substance: ACETAMINOPHEN
     Dates: start: 20210718, end: 20210804
  17. COLCHICINE [Concomitant]
     Active Substance: COLCHICINE
     Dates: start: 20210712, end: 20210804
  18. DEXAMETHASONE SODIUM PHOSPHATE [Concomitant]
     Active Substance: DEXAMETHASONE SODIUM PHOSPHATE
     Dates: start: 20210804
  19. AMITRIPTYLINE HYDROCHLORIDE [Concomitant]
     Active Substance: AMITRIPTYLINE HYDROCHLORIDE
     Dates: start: 20210729, end: 20210927
  20. FASTURTEC [Concomitant]
     Active Substance: RASBURICASE
     Dates: start: 20210804, end: 20210812
  21. ACETAMINOPHEN [Concomitant]
     Active Substance: ACETAMINOPHEN
     Dosage: UNIT DOSE: 1 GM
     Route: 048
     Dates: start: 20210811, end: 20210811
  22. BACTRIM [Concomitant]
     Active Substance: SULFAMETHOXAZOLE\TRIMETHOPRIM
     Dates: start: 20210718
  23. CHOLECALCIFEROL [Concomitant]
     Active Substance: CHOLECALCIFEROL
     Dates: start: 20210718
  24. ZOFRAN [Concomitant]
     Active Substance: ONDANSETRON HYDROCHLORIDE
     Dates: start: 20210808, end: 20210810
  25. ESOMEPRAZOLE [Concomitant]
     Active Substance: ESOMEPRAZOLE
     Dates: start: 20210718
  26. SOLU-MEDROL [Concomitant]
     Active Substance: METHYLPREDNISOLONE SODIUM SUCCINATE
     Dosage: UNIT DOSE: 80 MG
     Route: 042
     Dates: start: 20210811, end: 20210822
  27. HUMULIN NOS [Concomitant]
     Active Substance: INSULIN HUMAN
     Dates: start: 20210805, end: 20210809
  28. XALATAN [Concomitant]
     Active Substance: LATANOPROST
     Dates: start: 20210718
  29. CALCIUM ACETATE, MAGNESIUM CARBONATE [Concomitant]
     Dates: start: 20210807, end: 20210809
  30. FEBUXOSTAT [Concomitant]
     Active Substance: FEBUXOSTAT
     Dates: start: 20201004
  31. ENOXAPARIN SODIUM [Concomitant]
     Active Substance: ENOXAPARIN SODIUM
     Dates: start: 20210719, end: 20210729
  32. VITAMIN A PALMITATE [Concomitant]
     Active Substance: VITAMIN A PALMITATE
     Dates: start: 20210805
  33. MONOPRONT [Concomitant]
     Dates: start: 20210719, end: 20210916
  34. TEMESTA [Concomitant]
     Dates: start: 20210804, end: 20210804
  35. AMOXICILLIN\CLAVULANATE POTASSIUM [Concomitant]
     Active Substance: AMOXICILLIN\CLAVULANATE POTASSIUM
     Dates: start: 20210819, end: 20210822
  36. ACYCLOVIR [Concomitant]
     Active Substance: ACYCLOVIR
     Dates: start: 20210721
  37. FLUCONAZOLE [Concomitant]
     Active Substance: FLUCONAZOLE
     Dates: start: 20210804
  38. FILGRASTIM [Concomitant]
     Active Substance: FILGRASTIM
     Dates: start: 20210726, end: 20210804
  39. PIPERACILLIN AND TAZOBACTAM [Concomitant]
     Active Substance: PIPERACILLIN SODIUM\TAZOBACTAM SODIUM
     Dates: start: 20210816, end: 20210819
  40. LASIX [Concomitant]
     Active Substance: FUROSEMIDE
     Dates: start: 20210805, end: 20210811
  41. MEDROL [Concomitant]
     Active Substance: METHYLPREDNISOLONE
     Dosage: UNIT DOSE: 80 MG
     Route: 048
     Dates: start: 20210812, end: 202108
  42. ONDANSETRON [Concomitant]
     Active Substance: ONDANSETRON
     Dates: start: 20210804
  43. ALIZAPRIDE HYDROCHLORIDE [Concomitant]
     Active Substance: ALIZAPRIDE HYDROCHLORIDE
     Dates: start: 20210804, end: 20210804

REACTIONS (3)
  - Acute kidney injury [Recovered/Resolved]
  - Periodontitis [Recovered/Resolved]
  - Cardiac failure [Recovered/Resolved]

NARRATIVE: CASE EVENT DATE: 20210807
